FAERS Safety Report 9365113 (Version 1)
Quarter: 2013Q2

REPORT INFORMATION
  Report Type: Spontaneous
  Country: IT (occurrence: IT)
  Receive Date: 20130624
  Receipt Date: 20130624
  Transmission Date: 20140414
  Serious: Yes (Other)
  Sender: FDA-Public Use
  Company Number: IT-ABBOTT-13P-083-1109761-00

PATIENT
  Age: 72 Year
  Sex: Female

DRUGS (6)
  1. CYCLOSPORINE [Suspect]
     Indication: ANTISYNTHETASE SYNDROME
  2. CYCLOSPORINE [Suspect]
  3. PREDNISONE [Concomitant]
     Indication: INTERSTITIAL LUNG DISEASE
  4. PREDNISONE [Concomitant]
  5. OXYGEN [Concomitant]
     Indication: DYSPNOEA
  6. OXYGEN [Concomitant]

REACTIONS (3)
  - Pulmonary arterial hypertension [Unknown]
  - Blood creatinine increased [Unknown]
  - Hypertension [Unknown]
